FAERS Safety Report 8614076-9 (Version None)
Quarter: 2012Q3

REPORT INFORMATION
  Report Type: 
  Country: None (occurrence: None)
  Receive Date: 20120823
  Receipt Date: 20120813
  Transmission Date: 20120928
  Serious: Yes (Other)
  Sender: FDA-Public Use
  Company Number: US-BAYER-2011-097337

PATIENT
  Age: 29 Year
  Sex: Female
  Weight: 104.31 kg

DRUGS (13)
  1. DROSPIRENONE AND ETHINYL ESTRADIOL [Suspect]
     Indication: MENORRHAGIA
     Dosage: UNK
     Dates: start: 20080901, end: 20090901
  2. DARVOCET [Concomitant]
     Dosage: UNK
     Dates: start: 20090912
  3. FLEXERIL [Concomitant]
     Dosage: UNK
     Dates: start: 20090912
  4. YAZ [Suspect]
     Indication: MENORRHAGIA
     Dosage: UNK
     Dates: start: 20080901, end: 20090901
  5. SIMVASTATIN [Concomitant]
     Dosage: UNK
     Dates: start: 20080101
  6. HUMALOG [Concomitant]
     Indication: DIABETES MELLITUS
     Dosage: UNK
     Dates: start: 19870101
  7. FLEXERIL [Concomitant]
  8. YAZ [Suspect]
     Indication: PAIN
  9. DROSPIRENONE AND ETHINYL ESTRADIOL [Suspect]
     Indication: PAIN
  10. VASOTEC [Concomitant]
     Dosage: UNK
     Dates: start: 19970101
  11. DILAUDID [Concomitant]
     Indication: MIGRAINE
     Dosage: UNK
     Dates: start: 20090501
  12. VALIUM [Concomitant]
     Indication: ANXIETY
     Dosage: UNK
     Dates: start: 20100101
  13. ATIVAN [Concomitant]
     Dosage: UNK
     Dates: start: 20090912

REACTIONS (6)
  - PORTAL VEIN THROMBOSIS [None]
  - INJURY [None]
  - DEPRESSION [None]
  - PAIN [None]
  - EMOTIONAL DISTRESS [None]
  - ANXIETY [None]
